FAERS Safety Report 24750683 (Version 1)
Quarter: 2024Q4

REPORT INFORMATION
  Report Type: Other
  Country: US (occurrence: US)
  Receive Date: 20241218
  Receipt Date: 20241218
  Transmission Date: 20250115
  Serious: Yes (Life-Threatening, Hospitalization, Other)
  Sender: MERCK KGAA
  Company Number: US-Merck Healthcare KGaA-2024065713

PATIENT
  Age: 55 Year
  Sex: Female

DRUGS (1)
  1. LEVOTHYROXINE [Suspect]
     Active Substance: LEVOTHYROXINE
     Indication: Product used for unknown indication

REACTIONS (4)
  - Cardiac arrest [Unknown]
  - Ventricular fibrillation [Unknown]
  - Thyrotoxic crisis [Unknown]
  - Overdose [Unknown]
